FAERS Safety Report 25505008 (Version 1)
Quarter: 2025Q3

REPORT INFORMATION
  Report Type: Spontaneous
  Country: US (occurrence: None)
  Receive Date: 20250701
  Receipt Date: 20250701
  Transmission Date: 20251021
  Serious: No
  Sender: FDA-CTU
  Company Number: None

PATIENT
  Age: 62 Year
  Sex: Female
  Weight: 75.15 kg

DRUGS (14)
  1. RINVOQ [Suspect]
     Active Substance: UPADACITINIB
     Indication: Rheumatoid arthritis
     Dosage: 15 MG DAILY ORAL
     Route: 048
     Dates: start: 20250530
  2. BUSPIRONE [Concomitant]
     Active Substance: BUSPIRONE HYDROCHLORIDE
  3. TRAZODONE [Concomitant]
     Active Substance: TRAZODONE HYDROCHLORIDE
  4. BUPROPION [Concomitant]
     Active Substance: BUPROPION
  5. TRAMADOL [Concomitant]
     Active Substance: TRAMADOL
  6. FOLIC ACID [Concomitant]
     Active Substance: FOLIC ACID
  7. ESCITALOPRAM [Concomitant]
     Active Substance: ESCITALOPRAM OXALATE
  8. ROSUVASTATIN [Concomitant]
     Active Substance: ROSUVASTATIN
  9. METHOTREXATE [Concomitant]
     Active Substance: METHOTREXATE
  10. AMLODIPINE [Concomitant]
     Active Substance: AMLODIPINE BESYLATE
  11. HYDROXYCHLOROQUINE [Concomitant]
     Active Substance: HYDROXYCHLOROQUINE
  12. METHYLPREDNISOLONE [Concomitant]
     Active Substance: METHYLPREDNISOLONE
  13. PANTOPRAZOLE [Concomitant]
     Active Substance: PANTOPRAZOLE
  14. HYDROCHLOROTHIAZIDE [Concomitant]
     Active Substance: HYDROCHLOROTHIAZIDE

REACTIONS (6)
  - Rash [None]
  - Rash [None]
  - Ingrown hair [None]
  - Dry skin [None]
  - Skin exfoliation [None]
  - Pain [None]

NARRATIVE: CASE EVENT DATE: 20250630
